FAERS Safety Report 6201095-5 (Version None)
Quarter: 2009Q2

REPORT INFORMATION
  Report Type: 
  Country: None (occurrence: None)
  Receive Date: 20090526
  Receipt Date: 20090515
  Transmission Date: 20091009
  Serious: Yes (Other)
  Sender: FDA-Public Use
  Company Number: GB-WYE-G03686509

PATIENT
  Sex: Female

DRUGS (3)
  1. GEMTUZUMAB OZOGAMICIN [Suspect]
     Dosage: UNKNOWN
     Dates: start: 20090508
  2. CYTARABINE [Concomitant]
     Dosage: UNKNOWN
     Dates: start: 20090508
  3. DAUNORUBICIN HCL [Concomitant]
     Dosage: UNKNOWN
     Dates: start: 20090508

REACTIONS (4)
  - CHILLS [None]
  - HYPOTENSION [None]
  - PYREXIA [None]
  - URINE OUTPUT DECREASED [None]
